FAERS Safety Report 9711903 (Version 2)
Quarter: 2013Q4

REPORT INFORMATION
  Report Type: Spontaneous
  Country: US (occurrence: US)
  Receive Date: 20131126
  Receipt Date: 20131126
  Transmission Date: 20140711
  Serious: No
  Sender: FDA-Public Use
  Company Number: US-BRISTOL-MYERS SQUIBB COMPANY-18828616

PATIENT
  Age: 64 Year
  Sex: Male
  Weight: 117.91 kg

DRUGS (2)
  1. BYDUREON [Suspect]
     Indication: TYPE 2 DIABETES MELLITUS
     Route: 058
     Dates: start: 20130315
  2. METFORMIN [Concomitant]

REACTIONS (3)
  - Injection site nodule [Recovering/Resolving]
  - Headache [Unknown]
  - Injection site extravasation [Recovered/Resolved]
